FAERS Safety Report 5758649-X (Version None)
Quarter: 2008Q2

REPORT INFORMATION
  Report Type: 
  Country: None (occurrence: None)
  Receive Date: 20080604
  Receipt Date: 20080528
  Transmission Date: 20081010
  Serious: Yes (Death)
  Sender: FDA-Public Use
  Company Number: US-JNJFOC-20080305068

PATIENT
  Age: 60 Year
  Sex: Female

DRUGS (2)
  1. LEVAQUIN [Suspect]
     Indication: DRUG USE FOR UNKNOWN INDICATION
     Route: 065
  2. AZITHROMYCIN [Concomitant]
     Route: 065

REACTIONS (2)
  - DEATH [None]
  - HYPERSENSITIVITY [None]
